FAERS Safety Report 19647358 (Version 3)
Quarter: 2021Q3

REPORT INFORMATION
  Report Type: Report from Study
  Country: US (occurrence: US)
  Receive Date: 20210802
  Receipt Date: 20210928
  Transmission Date: 20211014
  Serious: Yes (Hospitalization)
  Sender: FDA-Public Use
  Company Number: US-GLAXOSMITHKLINE-US2021GSK159888

PATIENT
  Age: 75 Year
  Sex: Male

DRUGS (48)
  1. ALLOPURINOL. [Concomitant]
     Active Substance: ALLOPURINOL
     Indication: GOUT
     Dosage: 100 MG, QD
     Route: 048
     Dates: start: 20180529
  2. HYDRALAZINE [Concomitant]
     Active Substance: HYDRALAZINE HYDROCHLORIDE
     Indication: HYPERTENSION
     Dosage: 50 MG, BID
     Route: 048
     Dates: start: 2010
  3. CEFEPIME [Concomitant]
     Active Substance: CEFEPIME HYDROCHLORIDE
     Indication: INFECTION PROPHYLAXIS
     Dosage: 1000 MG, SINGLE
     Route: 042
     Dates: start: 20210311, end: 20210311
  4. DEXAMETHASONE. [Suspect]
     Active Substance: DEXAMETHASONE
  5. INSULINE LISPRO [Concomitant]
     Indication: DIABETES MELLITUS
     Dosage: 50 DF, QD
     Route: 058
     Dates: start: 20190218
  6. ALBUTEROL. [Concomitant]
     Active Substance: ALBUTEROL
     Indication: CHRONIC OBSTRUCTIVE PULMONARY DISEASE
     Dosage: 1 PUFF(S), QID
     Route: 048
     Dates: start: 20200325
  7. CEFEPIME [Concomitant]
     Active Substance: CEFEPIME HYDROCHLORIDE
     Indication: PNEUMONIA
     Dosage: 2000 MG, BID
     Dates: start: 20210520, end: 20210524
  8. OXYCODONE?ACETAMINOPHEN [Concomitant]
     Active Substance: ACETAMINOPHEN\OXYCODONE HYDROCHLORIDE
     Indication: PAIN MANAGEMENT
     Dosage: 325 MG, QID
     Route: 048
     Dates: start: 20210312, end: 20210314
  9. ACYCLOVIR. [Concomitant]
     Active Substance: ACYCLOVIR
     Indication: PNEUMONIA
     Dosage: 400 MG, TID
     Route: 048
     Dates: start: 20210312, end: 20210314
  10. DULOXETINE. [Concomitant]
     Active Substance: DULOXETINE
     Indication: DEPRESSION
     Dosage: 60 MG, QD
     Route: 048
     Dates: start: 20180823
  11. GLUCAGON. [Concomitant]
     Active Substance: GLUCAGON
     Indication: DIABETES MELLITUS
     Dosage: 1 MG, PRN
     Route: 058
     Dates: start: 20170501
  12. METOPROLOL XL [Concomitant]
     Active Substance: METOPROLOL SUCCINATE
     Indication: HYPERTENSION
     Dosage: 50 MG, QD
     Route: 048
     Dates: start: 20180622
  13. SIMVASTATIN. [Concomitant]
     Active Substance: SIMVASTATIN
     Dosage: 20 MG, EVERY OTHER DAY
     Route: 048
     Dates: start: 20210521, end: 20210523
  14. GUAIFENESIN ER [Concomitant]
     Active Substance: GUAIFENESIN
     Indication: COUGH
     Dosage: 600 MG, BID
     Route: 048
     Dates: start: 20210521, end: 20210526
  15. BELANTAMAB MAFODOTIN. [Suspect]
     Active Substance: BELANTAMAB MAFODOTIN
     Indication: PLASMA CELL MYELOMA
     Dosage: 2.5 MG/KG
  16. ASPIRIN. [Concomitant]
     Active Substance: ASPIRIN
     Dosage: 324 MG, SINGLE
     Route: 048
     Dates: start: 20210324, end: 20210324
  17. INSULINE GLARGINE [Concomitant]
     Active Substance: INSULIN GLARGINE
     Indication: DIABETES MELLITUS
     Dosage: 3 DF, QD
     Route: 058
     Dates: start: 20190503
  18. SIMVASTATIN. [Concomitant]
     Active Substance: SIMVASTATIN
     Indication: BLOOD CHOLESTEROL INCREASED
     Dosage: 20 MG, EVERY OTHER DAY
     Route: 048
     Dates: start: 20190529
  19. AZITHROMYCIN ANHYDROUS. [Concomitant]
     Active Substance: AZITHROMYCIN ANHYDROUS
     Indication: PNEUMONIA
     Dosage: 500 MG, QD
     Route: 048
     Dates: start: 20210521, end: 20210522
  20. METOPROLOL. [Concomitant]
     Active Substance: METOPROLOL
     Indication: HYPERTENSION
     Dosage: 600 MG, BID
     Route: 048
     Dates: start: 20210521, end: 20210526
  21. TAMSULOSIN [Concomitant]
     Active Substance: TAMSULOSIN
     Indication: BLOOD CHOLESTEROL INCREASED
     Dosage: 0.4 MG, QD
     Route: 048
     Dates: start: 20210521, end: 20210525
  22. BORTEZOMIB. [Suspect]
     Active Substance: BORTEZOMIB
     Indication: PLASMA CELL MYELOMA
     Dosage: UNK, CYC
     Dates: end: 20200601
  23. ACYCLOVIR. [Concomitant]
     Active Substance: ACYCLOVIR
     Dosage: 5 MG, BID
     Route: 048
     Dates: start: 20210521, end: 20210525
  24. ASPIRIN. [Concomitant]
     Active Substance: ASPIRIN
     Indication: THROMBOSIS PROPHYLAXIS
     Dosage: 81 MG, QD
     Route: 048
     Dates: start: 2001
  25. CARBOXYMETHYL CELLULOSE [Concomitant]
     Indication: PROPHYLAXIS
     Dosage: 1 DF, QID, BOTH EYES
     Dates: start: 20191022
  26. GABAPENTINE [Concomitant]
     Active Substance: GABAPENTIN
     Indication: PERIPHERAL SENSORY NEUROPATHY
     Dosage: 300 MG, TID
     Route: 048
     Dates: start: 2018
  27. LOPERAMIDE [Concomitant]
     Active Substance: LOPERAMIDE
     Indication: DIARRHOEA
     Dosage: 20 MG, PRN
     Route: 048
     Dates: start: 20200317
  28. CEFEPIME [Concomitant]
     Active Substance: CEFEPIME HYDROCHLORIDE
     Dosage: 2000 MG, BID
     Route: 042
     Dates: start: 20210524, end: 20210526
  29. FUROSEMIDE. [Concomitant]
     Active Substance: FUROSEMIDE
     Indication: FLUID RETENTION
     Dosage: 40 MG, SINGLE
     Route: 042
     Dates: start: 20210520, end: 20210521
  30. ACYCLOVIR. [Concomitant]
     Active Substance: ACYCLOVIR
     Indication: INFECTION PROPHYLAXIS
     Dosage: 400 MG, BID
     Route: 048
     Dates: start: 20190218
  31. AMLODIPINE [Concomitant]
     Active Substance: AMLODIPINE BESYLATE
     Indication: HYPERTENSION
     Dosage: 10 MG, QD
     Route: 048
     Dates: start: 2001
  32. CANDESARTAN. [Concomitant]
     Active Substance: CANDESARTAN
     Indication: HYPERTENSION
     Dosage: 32 MG, QD
     Route: 048
     Dates: start: 20190218
  33. DIPHENOXYLATE HYDROCHLORIDE AND ATROPINE SULFATE [Concomitant]
     Active Substance: ATROPINE SULFATE\DIPHENOXYLATE HYDROCHLORIDE
     Indication: DIARRHOEA
     Dosage: 2 DF, QID
     Route: 048
     Dates: start: 20200324
  34. MORPHINE INJECTION [Concomitant]
     Active Substance: MORPHINE
     Indication: PAIN MANAGEMENT
     Dosage: 2 MG, BID
     Route: 042
     Dates: start: 20210311, end: 20210314
  35. ACETAMINOPHEN. [Concomitant]
     Active Substance: ACETAMINOPHEN
     Indication: PROPHYLAXIS
     Dosage: 1000 MG, SINGLE
     Route: 048
     Dates: start: 20210520, end: 20210520
  36. AZITHROMYCIN ANHYDROUS. [Concomitant]
     Active Substance: AZITHROMYCIN ANHYDROUS
     Dosage: 500 MG, QD
     Route: 048
     Dates: start: 20210523, end: 20210524
  37. FOLIC ACID. [Concomitant]
     Active Substance: FOLIC ACID
     Indication: ANAEMIA PROPHYLAXIS
     Dosage: 1 MG, QD
     Route: 048
     Dates: start: 20210521, end: 20210526
  38. LOSARTAN HYDROCHLOROTHIAZIDE ACTAVIS [Concomitant]
     Active Substance: HYDROCHLOROTHIAZIDE\LOSARTAN POTASSIUM
     Indication: HYPERTENSION
     Dosage: 1 DF, QD
     Route: 048
     Dates: start: 20200614
  39. APIXABAN [Concomitant]
     Active Substance: APIXABAN
     Indication: THROMBOSIS PROPHYLAXIS
  40. TAMSULOSIN [Concomitant]
     Active Substance: TAMSULOSIN
     Indication: URINARY RETENTION
  41. CHOLECALCIFEROL [Concomitant]
     Active Substance: CHOLECALCIFEROL
     Indication: HYPOVITAMINOSIS
     Dosage: 1 DF, QD
     Route: 048
     Dates: start: 20190716
  42. PRED FORTE [Concomitant]
     Active Substance: PREDNISOLONE ACETATE
     Indication: PROPHYLAXIS
     Dosage: 1 DF, Q6H
     Dates: start: 20191022
  43. APIXABAN [Concomitant]
     Active Substance: APIXABAN
     Indication: ATRIAL FIBRILLATION
     Dosage: 5 MG, BID
     Route: 048
     Dates: start: 20200325
  44. NIFEDIPINE. [Concomitant]
     Active Substance: NIFEDIPINE
     Indication: HYPERTENSION
     Dosage: 10 MG, QD
     Route: 048
     Dates: start: 20191029
  45. CHOLESTYRAMINE. [Concomitant]
     Active Substance: CHOLESTYRAMINE
     Indication: HYPERCHOLESTEROLAEMIA
     Dosage: 4 G, BID
     Route: 048
     Dates: start: 20200616
  46. CEFEPIME [Concomitant]
     Active Substance: CEFEPIME HYDROCHLORIDE
     Dosage: 1000 MG, SINGLE
     Route: 042
     Dates: start: 20210404, end: 20210404
  47. HYDROCODONE?ACETAMINOPHEN [Concomitant]
     Active Substance: ACETAMINOPHEN\HYDROCODONE
     Indication: PAIN MANAGEMENT
     Dosage: 325 MG, PRN
     Route: 048
     Dates: start: 20210311, end: 20210312
  48. VANCOMYCIN [Concomitant]
     Active Substance: VANCOMYCIN
     Indication: INFECTION PROPHYLAXIS
     Dosage: 1000 MG, QD
     Route: 042
     Dates: start: 20210311, end: 20210312

REACTIONS (2)
  - Pulmonary oedema [Not Recovered/Not Resolved]
  - Pneumonia [Recovered/Resolved]

NARRATIVE: CASE EVENT DATE: 20210721
